FAERS Safety Report 17316523 (Version 2)
Quarter: 2020Q1

REPORT INFORMATION
  Report Type: Spontaneous
  Country: IT (occurrence: IT)
  Receive Date: 20200124
  Receipt Date: 20200211
  Transmission Date: 20200409
  Serious: Yes (Hospitalization, Other)
  Sender: FDA-Public Use
  Company Number: IT-ALSI-202000019

PATIENT
  Age: 79 Year
  Sex: Male

DRUGS (1)
  1. OXYGEN. [Suspect]
     Active Substance: OXYGEN
     Indication: CHRONIC RESPIRATORY DISEASE
     Route: 055

REACTIONS (3)
  - Intentional product misuse [Not Recovered/Not Resolved]
  - Thermal burn [Not Recovered/Not Resolved]
  - Accident [Not Recovered/Not Resolved]
